FAERS Safety Report 15794025 (Version 1)
Quarter: 2018Q4

REPORT INFORMATION
  Report Type: Spontaneous
  Country: US (occurrence: US)
  Receive Date: 20181213
  Receipt Date: 20181213
  Transmission Date: 20190205
  Serious: No
  Sender: FDA-Public Use
  Company Number: None

PATIENT
  Age: 61 Year
  Sex: Female
  Weight: 71.21 kg

DRUGS (3)
  1. TALTZ [Suspect]
     Active Substance: IXEKIZUMAB
     Indication: PSORIATIC ARTHROPATHY
     Dosage: INJECT 160MG (2 SYRINGES) SUBCUTANEOUSLY AT WEEK 0?THEN  80MG (1 SYRINGE) AT WEEK 2 AS DIRECTED?
     Route: 058
     Dates: start: 201804
  2. TALTZ [Suspect]
     Active Substance: IXEKIZUMAB
     Indication: PSORIASIS
     Dosage: ?          OTHER FREQUENCY:WEEK 2;?
     Route: 058
  3. TALTZ [Suspect]
     Active Substance: IXEKIZUMAB
     Indication: PSORIASIS
     Dosage: INJECT 160MG (2 SYRINGES) SUBCUTANEOUSLY AT WEEK 0?THEN  80MG (1 SYRINGE) AT WEEK 2 AS DIRECTED?
     Route: 058
     Dates: start: 201804

REACTIONS (2)
  - Fatigue [None]
  - Decreased appetite [None]
